FAERS Safety Report 4556898-X (Version None)
Quarter: 2005Q1

REPORT INFORMATION
  Report Type: 
  Country: None (occurrence: None)
  Receive Date: 20050120
  Receipt Date: 20040708
  Transmission Date: 20050727
  Serious: Yes (Hospitalization, Disabling)
  Sender: FDA-Public Use
  Company Number: US-MERCK-0407USA00707

PATIENT
  Age: 40 Year
  Sex: Male
  Weight: 95 kg

DRUGS (8)
  1. VIOXX [Suspect]
     Indication: BACK PAIN
     Route: 048
     Dates: start: 20011218, end: 20020802
  2. NEURONTIN [Concomitant]
     Route: 048
  3. FLEXERIL [Concomitant]
     Indication: MYALGIA
     Route: 048
  4. VIAGRA [Concomitant]
     Route: 048
  5. LIPITOR [Concomitant]
     Route: 048
     Dates: start: 20011201
  6. VALTREX [Concomitant]
     Indication: HERPES ZOSTER
     Route: 048
     Dates: start: 20020514, end: 20020729
  7. NIASPAN [Concomitant]
     Route: 048
  8. PAXIL [Concomitant]
     Route: 065

REACTIONS (10)
  - ANXIETY [None]
  - CORONARY ARTERY DISEASE [None]
  - DEPRESSION [None]
  - DIABETES MELLITUS NON-INSULIN-DEPENDENT [None]
  - ERECTILE DYSFUNCTION [None]
  - HYPERTENSION [None]
  - HYPERTRIGLYCERIDAEMIA [None]
  - MICTURITION DISORDER [None]
  - MYOCARDIAL INFARCTION [None]
  - RENAL FAILURE ACUTE [None]
